FAERS Safety Report 6571196-0 (Version None)
Quarter: 2010Q1

REPORT INFORMATION
  Report Type: 
  Country: None (occurrence: None)
  Receive Date: 20100129
  Receipt Date: 20100104
  Transmission Date: 20100710
  Serious: Yes (Hospitalization)
  Sender: FDA-Public Use
  Company Number: 2009AC000459

PATIENT
  Age: 93 Year
  Sex: Female

DRUGS (13)
  1. DIGOXIN [Suspect]
     Dosage: PO
     Route: 048
     Dates: start: 20060101
  2. LASIX [Concomitant]
  3. COUMADIN [Concomitant]
  4. KLOR-CON [Concomitant]
  5. XALATAN [Concomitant]
  6. PERCOCET [Concomitant]
  7. COUMADIN [Concomitant]
  8. TREVATAN [Concomitant]
  9. LASIX [Concomitant]
  10. HYDROCHLOROTHIAZIDE [Concomitant]
  11. TUMS [Concomitant]
  12. POTASSIUM [Concomitant]
  13. MULTI-VITAMINS [Concomitant]

REACTIONS (19)
  - AORTIC ARTERIOSCLEROSIS [None]
  - AORTIC VALVE INCOMPETENCE [None]
  - ARTHRALGIA [None]
  - ATRIAL FIBRILLATION [None]
  - CARDIAC FAILURE CONGESTIVE [None]
  - CHEST DISCOMFORT [None]
  - DIZZINESS [None]
  - ECONOMIC PROBLEM [None]
  - EFFUSION [None]
  - FALL [None]
  - JOINT SWELLING [None]
  - KYPHOSIS [None]
  - MULTIPLE INJURIES [None]
  - OEDEMA PERIPHERAL [None]
  - PAINFUL RESPIRATION [None]
  - RIB FRACTURE [None]
  - SURGERY [None]
  - TENDERNESS [None]
  - TRICUSPID VALVE INCOMPETENCE [None]
